FAERS Safety Report 8616454-0 (Version None)
Quarter: 2012Q3

REPORT INFORMATION
  Report Type: 
  Country: None (occurrence: None)
  Receive Date: 20120823
  Receipt Date: 20120816
  Transmission Date: 20120928
  Serious: Yes (Death, Hospitalization)
  Sender: FDA-Public Use
  Company Number: BR-BRISTOL-MYERS SQUIBB COMPANY-16723058

PATIENT
  Age: 47 Year
  Sex: Female

DRUGS (4)
  1. ONDANSETRON [Concomitant]
     Dates: start: 20120624, end: 20120630
  2. CORTICOSTEROID [Concomitant]
     Dates: start: 20120624, end: 20120630
  3. IPILIMUMAB [Suspect]
     Indication: MALIGNANT MELANOMA
     Dosage: 216 MG ON 11-JUN-2012.
     Route: 042
     Dates: start: 20120619, end: 20120619
  4. PANTOPRAZOLE [Concomitant]
     Dates: start: 20120624, end: 20120630

REACTIONS (4)
  - VOMITING [None]
  - SEPSIS [None]
  - DEHYDRATION [None]
  - PAIN [None]
